FAERS Safety Report 11963715 (Version 1)
Quarter: 2016Q1

REPORT INFORMATION
  Report Type: Spontaneous
  Country: ZA (occurrence: None)
  Receive Date: 20160122
  Receipt Date: 20160122
  Transmission Date: 20160526
  Serious: Yes (Life-Threatening, Hospitalization, Other)
  Sender: FDA-Public Use
  Company Number: None

PATIENT
  Age: 34 Year
  Sex: Female
  Weight: 48 kg

DRUGS (6)
  1. TREPILINE 50MG [Suspect]
     Active Substance: AMITRIPTYLINE
  2. DOPAQUEL FILM COATED TABLET [Concomitant]
     Active Substance: QUETIAPINE
  3. CITALOPRAM [Suspect]
     Active Substance: CITALOPRAM HYDROBROMIDE
  4. CENTRUM [Concomitant]
     Active Substance: VITAMINS
  5. STILPANE [Concomitant]
  6. IVEDAL [Concomitant]

REACTIONS (7)
  - Hallucination, visual [None]
  - Confusional state [None]
  - Fatigue [None]
  - Palpitations [None]
  - Weight decreased [None]
  - Diaphragmatic hernia [None]
  - Dizziness [None]
